FAERS Safety Report 8338074-8 (Version None)
Quarter: 2012Q2

REPORT INFORMATION
  Report Type: 
  Country: None (occurrence: None)
  Receive Date: 20120504
  Receipt Date: 20120425
  Transmission Date: 20120825
  Serious: Yes (Other)
  Sender: FDA-Public Use
  Company Number: US-ASTRAZENECA-2012SE27068

PATIENT
  Age: 59 Year
  Sex: Female
  Weight: 131.1 kg

DRUGS (2)
  1. NEXIUM [Suspect]
     Route: 048
  2. NEXIUM [Suspect]
     Route: 048

REACTIONS (7)
  - INTENTIONAL DRUG MISUSE [None]
  - MALAISE [None]
  - NEOPLASM MALIGNANT [None]
  - COLONIC POLYP [None]
  - VOMITING [None]
  - DIARRHOEA [None]
  - DYSPNOEA [None]
